FAERS Safety Report 7338619-0 (Version None)
Quarter: 2011Q1

REPORT INFORMATION
  Report Type: 
  Country: None (occurrence: None)
  Receive Date: 20110304
  Receipt Date: 20110304
  Transmission Date: 20110831
  Serious: No
  Sender: FDA-Public Use
  Company Number: None

PATIENT
  Sex: Female

DRUGS (2)
  1. FOCALIN [Suspect]
  2. FOCALIN [Suspect]

REACTIONS (4)
  - CYSTIC FIBROSIS [None]
  - PRODUCT SUBSTITUTION ISSUE [None]
  - CONDITION AGGRAVATED [None]
  - DRUG INTOLERANCE [None]
